FAERS Safety Report 22281225 (Version 4)
Quarter: 2023Q4

REPORT INFORMATION
  Report Type: Report from Study
  Country: US (occurrence: US)
  Receive Date: 20230504
  Receipt Date: 20231122
  Transmission Date: 20240109
  Serious: No
  Sender: FDA-Public Use
  Company Number: US-TAKEDA-2023TUS041191

PATIENT
  Sex: Male

DRUGS (3)
  1. IXAZOMIB [Suspect]
     Active Substance: IXAZOMIB
     Indication: Plasma cell myeloma
     Dosage: 4 MILLIGRAM
     Route: 048
     Dates: start: 20230317
  2. IXAZOMIB [Suspect]
     Active Substance: IXAZOMIB
     Dosage: 4 MILLIGRAM
     Route: 048
     Dates: start: 20230412
  3. REVLIMID [Suspect]
     Active Substance: LENALIDOMIDE
     Indication: Product used for unknown indication
     Dosage: UNK
     Route: 065

REACTIONS (14)
  - Peripheral swelling [Unknown]
  - Respiratory rate increased [Unknown]
  - Hiccups [Recovering/Resolving]
  - Feeling abnormal [Unknown]
  - Gait disturbance [Unknown]
  - Illness [Recovered/Resolved]
  - Chest pain [Not Recovered/Not Resolved]
  - Anaemia [Unknown]
  - Cough [Recovered/Resolved]
  - Asthenia [Unknown]
  - Arthralgia [Not Recovered/Not Resolved]
  - Rash macular [Unknown]
  - Inappropriate schedule of product administration [Unknown]
  - Off label use [Unknown]
